FAERS Safety Report 14334295 (Version 4)
Quarter: 2018Q1

REPORT INFORMATION
  Report Type: Spontaneous
  Country: CA (occurrence: CA)
  Receive Date: 20171228
  Receipt Date: 20180228
  Transmission Date: 20180509
  Serious: Yes (Other)
  Sender: FDA-Public Use
  Company Number: CA-PFIZER INC-2017550874

PATIENT
  Age: 62 Year
  Sex: Female
  Weight: 51 kg

DRUGS (5)
  1. PREDNISONE. [Concomitant]
     Active Substance: PREDNISONE
     Dosage: 4 MG, UNK
     Route: 048
  2. METHOTREXATE SODIUM. [Suspect]
     Active Substance: METHOTREXATE SODIUM
     Indication: RHEUMATOID ARTHRITIS
     Dosage: UNK, WEEKLY
     Route: 048
  3. PROLIA [Concomitant]
     Active Substance: DENOSUMAB
     Dosage: UNK
  4. PREDNISONE. [Concomitant]
     Active Substance: PREDNISONE
     Dosage: 3 MG, DAILY
  5. CORTISONE [Concomitant]
     Active Substance: CORTISONE\HYDROCORTISONE
     Dosage: UNK

REACTIONS (18)
  - Granulomatous liver disease [Unknown]
  - Dry eye [Unknown]
  - Kidney infection [Unknown]
  - Arthritis [Unknown]
  - Influenza [Not Recovered/Not Resolved]
  - Thyroid calcification [Unknown]
  - Nasal congestion [Not Recovered/Not Resolved]
  - Loss of consciousness [Unknown]
  - Pain [Unknown]
  - Gait disturbance [Unknown]
  - Head injury [Unknown]
  - Foot deformity [Unknown]
  - Nodule [Unknown]
  - Pleural fibrosis [Unknown]
  - Herpes zoster [Unknown]
  - Vertebral lesion [Unknown]
  - Drug ineffective [Unknown]
  - Osteoarthritis [Unknown]
